FAERS Safety Report 21242081 (Version 7)
Quarter: 2024Q1

REPORT INFORMATION
  Report Type: Spontaneous
  Country: US (occurrence: US)
  Receive Date: 20220823
  Receipt Date: 20240315
  Transmission Date: 20240409
  Serious: No
  Sender: FDA-Public Use
  Company Number: US-PFIZER INC-PV202200047894

PATIENT
  Age: 57 Year
  Sex: Female
  Weight: 63.492 kg

DRUGS (1)
  1. PREMARIN [Suspect]
     Active Substance: ESTROGENS, CONJUGATED
     Indication: Menopause
     Dosage: UNK, DAILY
     Dates: start: 202210

REACTIONS (1)
  - Nervousness [Unknown]
